FAERS Safety Report 11575006 (Version 1)
Quarter: 2015Q3

REPORT INFORMATION
  Report Type: Other
  Country: GB (occurrence: GB)
  Receive Date: 20150930
  Receipt Date: 20150930
  Transmission Date: 20151125
  Serious: Yes (Death, Other)
  Sender: FDA-Public Use
  Company Number: GB-TARO PHARMACEUTICALS USA.,INC-2015SUN02041

PATIENT

DRUGS (7)
  1. PERINDOPRIL [Concomitant]
     Active Substance: PERINDOPRIL
     Dosage: 4 MG, UNK
  2. NUTRITIONAL SUPPLEMENT [Concomitant]
     Active Substance: DIETARY SUPPLEMENT
  3. LACTULOSE SOLUTION [Concomitant]
     Dosage: UNK
  4. WARFARIN [Suspect]
     Active Substance: WARFARIN
     Indication: MITRAL VALVE REPLACEMENT
     Dosage: UNK
     Route: 048
     Dates: start: 1999, end: 20150824
  5. BACLOFEN. [Concomitant]
     Active Substance: BACLOFEN
     Dosage: 5 MG, TID
  6. DIGOXIN. [Concomitant]
     Active Substance: DIGOXIN
     Dosage: 62.5 MG, UNK
  7. INDAPAMIDE. [Concomitant]
     Active Substance: INDAPAMIDE
     Dosage: 2.5 MG, UNK

REACTIONS (3)
  - Gastrointestinal haemorrhage [Fatal]
  - Circulatory collapse [Not Recovered/Not Resolved]
  - International normalised ratio increased [Unknown]

NARRATIVE: CASE EVENT DATE: 20150824
